FAERS Safety Report 19680216 (Version 1)
Quarter: 2021Q3

REPORT INFORMATION
  Report Type: Spontaneous
  Country: US (occurrence: US)
  Receive Date: 20210810
  Receipt Date: 20210810
  Transmission Date: 20211014
  Serious: No
  Sender: FDA-Public Use
  Company Number: None

PATIENT
  Age: 54 Year
  Sex: Male
  Weight: 90.72 kg

DRUGS (1)
  1. ORENCIA [Suspect]
     Active Substance: ABATACEPT
     Indication: RHEUMATOID ARTHRITIS
     Dosage: OTHER FREQUENCY:WEEK 0  WEEK 2 AND  WEEK 4 AS DIRECTED?
     Route: 042
     Dates: start: 201712

REACTIONS (2)
  - Diarrhoea [None]
  - Gastric infection [None]
